FAERS Safety Report 6678902-5 (Version None)
Quarter: 2010Q2

REPORT INFORMATION
  Report Type: 
  Country: None (occurrence: None)
  Receive Date: 20100412
  Receipt Date: 20100412
  Transmission Date: 20101027
  Serious: Yes (Other)
  Sender: FDA-Public Use
  Company Number: None

PATIENT
  Sex: Female
  Weight: 136.0791 kg

DRUGS (1)
  1. NOVOLIN R [Suspect]

REACTIONS (2)
  - DRUG INEFFECTIVE [None]
  - INJECTION SITE RASH [None]
